FAERS Safety Report 9534687 (Version 2)
Quarter: 2013Q4

REPORT INFORMATION
  Report Type: Spontaneous
  Country: US (occurrence: US)
  Receive Date: 20130918
  Receipt Date: 20131022
  Transmission Date: 20140711
  Serious: No
  Sender: FDA-Public Use
  Company Number: US-PFIZER INC-2013269609

PATIENT
  Age: 72 Year
  Sex: Female
  Weight: 56.69 kg

DRUGS (5)
  1. NEURONTIN [Suspect]
     Dosage: 200 MG, 1X/DAY
     Dates: end: 2013
  2. NEURONTIN [Suspect]
     Indication: RESTLESS LEGS SYNDROME
     Dosage: 600 MG, 1X/DAY
     Dates: start: 2013
  3. NORVASC [Concomitant]
     Dosage: 5 MG, 1X/DAY
  4. CITALOPRAM [Concomitant]
     Dosage: 75 MG, 1X/DAY
  5. SYNTHROID [Concomitant]
     Dosage: 8 UG, 1X/DAY

REACTIONS (4)
  - Hypersensitivity [Unknown]
  - Pruritus generalised [Unknown]
  - Off label use [Unknown]
  - Drug ineffective for unapproved indication [Unknown]
